FAERS Safety Report 9247372 (Version 1)
Quarter: 2013Q2

REPORT INFORMATION
  Report Type: Spontaneous
  Country: NG (occurrence: NG)
  Receive Date: 20130423
  Receipt Date: 20130423
  Transmission Date: 20140414
  Serious: Yes (Death)
  Sender: FDA-Public Use
  Company Number: NG-PFIZER INC-2013123399

PATIENT
  Age: 30 Year
  Sex: Female

DRUGS (2)
  1. VFEND [Suspect]
     Indication: FUNGAL INFECTION
     Dosage: 6 MG/KG, UNK
     Route: 042
     Dates: start: 20130409
  2. NORMAL SALINE [Concomitant]

REACTIONS (1)
  - Death [Fatal]
